FAERS Safety Report 6556583-9 (Version None)
Quarter: 2010Q1

REPORT INFORMATION
  Report Type: 
  Country: None (occurrence: None)
  Receive Date: 20100125
  Receipt Date: 20100125
  Transmission Date: 20100710
  Serious: Yes (Hospitalization, Other)
  Sender: FDA-Public Use
  Company Number: None

PATIENT
  Age: 53 Year
  Sex: Male
  Weight: 86 kg

DRUGS (6)
  1. NICORETTE [Suspect]
     Indication: DRUG USE FOR UNKNOWN INDICATION
     Dosage: 1 PATCH DAILY ( 1 IN 1 D), TRANSDERMAL
     Route: 062
     Dates: start: 20090909, end: 20090901
  2. AMLODIPINE [Concomitant]
  3. RAMIPRIL [Concomitant]
  4. SIMVASTATIN [Concomitant]
  5. NOVOLOG [Concomitant]
  6. PROTAPHAN (INSULIN ISOPHANE, HUMAN BIOSYNTHETIC) [Concomitant]

REACTIONS (7)
  - ALANINE AMINOTRANSFERASE ABNORMAL [None]
  - APPLICATION SITE ERYTHEMA [None]
  - ASPARTATE AMINOTRANSFERASE ABNORMAL [None]
  - GAMMA-GLUTAMYLTRANSFERASE ABNORMAL [None]
  - INSOMNIA [None]
  - RASH [None]
  - VOMITING [None]
